FAERS Safety Report 4634714-5 (Version None)
Quarter: 2005Q2

REPORT INFORMATION
  Report Type: 
  Country: None (occurrence: None)
  Receive Date: 20050413
  Receipt Date: 20050413
  Transmission Date: 20051028
  Serious: Yes (Other)
  Sender: FDA-Public Use
  Company Number: None

PATIENT
  Age: 78 Year
  Sex: Male
  Weight: 99.7913 kg

DRUGS (8)
  1. NIASPAN [Suspect]
     Indication: BLOOD TRIGLYCERIDES INCREASED
     Dosage: 1 TAB DAILY; 500 MG
  2. NIASPAN [Suspect]
     Indication: HIGH DENSITY LIPOPROTEIN DECREASED
     Dosage: 1 TAB DAILY; 500 MG
  3. PRILOSEC [Concomitant]
  4. DITROPAN [Concomitant]
  5. HYTRIN [Concomitant]
  6. ULTRASET [Concomitant]
  7. ALOPURINOL [Concomitant]
  8. ATENOLOL [Concomitant]

REACTIONS (1)
  - MYALGIA [None]
